FAERS Safety Report 21739456 (Version 1)
Quarter: 2022Q4

REPORT INFORMATION
  Report Type: Spontaneous
  Country: CH (occurrence: None)
  Receive Date: 20221216
  Receipt Date: 20221216
  Transmission Date: 20230113
  Serious: Yes (Other)
  Sender: FDA-Public Use
  Company Number: CH-ROCHE-3243034

PATIENT
  Sex: Male

DRUGS (4)
  1. TECENTRIQ [Suspect]
     Active Substance: ATEZOLIZUMAB
     Indication: Lung adenocarcinoma
     Route: 065
  2. AVASTIN [Suspect]
     Active Substance: BEVACIZUMAB
     Indication: Lung adenocarcinoma
     Dosage: 15 MG/KG EVERY 3 WEEKS AND GIVEN FOR A TOTAL OF 4?TO 6 CYCLES
     Route: 065
  3. CARBOPLATIN [Concomitant]
     Active Substance: CARBOPLATIN
     Dosage: AUC 6
  4. PACLITAXEL [Concomitant]
     Active Substance: PACLITAXEL
     Dosage: 175-200 MG/M2

REACTIONS (1)
  - Disease progression [Unknown]
